FAERS Safety Report 8249187-3 (Version None)
Quarter: 2012Q1

REPORT INFORMATION
  Report Type: 
  Country: None (occurrence: None)
  Receive Date: 20120314
  Receipt Date: 20120301
  Transmission Date: 20120608
  Serious: Yes (Life-Threatening, Other)
  Sender: FDA-Public Use
  Company Number: 2012031476

PATIENT
  Age: 43 Year
  Sex: Female

DRUGS (2)
  1. CARIMUNE [Suspect]
     Indication: SELECTIVE IGA IMMUNODEFICIENCY
     Dosage: INTRAVENOUS (NOT OTHERWISE SPECIFIED)
     Route: 042
     Dates: start: 20120112
  2. CARIMUNE [Suspect]
     Indication: IMMUNODEFICIENCY COMMON VARIABLE
     Dosage: INTRAVENOUS (NOT OTHERWISE SPECIFIED)
     Route: 042
     Dates: start: 20120112

REACTIONS (2)
  - ANAPHYLACTIC REACTION [None]
  - CARDIO-RESPIRATORY ARREST [None]
